FAERS Safety Report 4316373-4 (Version None)
Quarter: 2004Q1

REPORT INFORMATION
  Report Type: 
  Country: None (occurrence: None)
  Receive Date: 20040311
  Receipt Date: 20040301
  Transmission Date: 20041129
  Serious: Yes (Hospitalization)
  Sender: FDA-Public Use
  Company Number: 2003111063

PATIENT
  Age: 81 Year
  Sex: Male

DRUGS (2)
  1. ATARAX [Suspect]
     Indication: ILL-DEFINED DISORDER
     Dosage: 75 MG TID ORAL
     Route: 048
     Dates: start: 20030627, end: 20030829
  2. HALOPERIDOL [Suspect]
     Indication: ILL-DEFINED DISORDER
     Dosage: ORAL
     Route: 048
     Dates: start: 20030701, end: 20030712

REACTIONS (3)
  - KLEBSIELLA INFECTION [None]
  - NOSOCOMIAL INFECTION [None]
  - URINARY RETENTION [None]
